FAERS Safety Report 6336689-X (Version None)
Quarter: 2009Q3

REPORT INFORMATION
  Report Type: 
  Country: None (occurrence: None)
  Receive Date: 20090901
  Receipt Date: 20090828
  Transmission Date: 20100115
  Serious: Yes (Other)
  Sender: FDA-Public Use
  Company Number: US-MERCK-0907USA01306

PATIENT
  Age: 77 Year
  Sex: Female
  Weight: 50 kg

DRUGS (4)
  1. JANUVIA [Suspect]
     Indication: BLOOD GLUCOSE INCREASED
     Route: 048
     Dates: start: 20070101
  2. COREG [Concomitant]
     Route: 065
  3. PRAVACHOL [Concomitant]
     Route: 065
  4. AVAPRO [Concomitant]
     Route: 065

REACTIONS (8)
  - ASTHENIA [None]
  - BLOOD GLUCOSE ABNORMAL [None]
  - COUGH [None]
  - DYSPHONIA [None]
  - NODULE [None]
  - THROAT TIGHTNESS [None]
  - THYROID DISORDER [None]
  - WEIGHT DECREASED [None]
